FAERS Safety Report 18681280 (Version 1)
Quarter: 2020Q4

REPORT INFORMATION
  Report Type: Other
  Country: US (occurrence: US)
  Receive Date: 20201230
  Receipt Date: 20201230
  Transmission Date: 20210114
  Serious: Yes (Hospitalization)
  Sender: FDA-Public Use
  Company Number: US-ROCHE-2740184

PATIENT
  Sex: Male

DRUGS (11)
  1. PREDNISONE. [Concomitant]
     Active Substance: PREDNISONE
     Dates: start: 20201127
  2. VARUBI [Concomitant]
     Active Substance: ROLAPITANT
     Dosage: TAKE 2 TAB ORAL 1-2 HR PRIOR TO CHEMO AS DIRECTED
     Route: 048
  3. RITUXAN [Suspect]
     Active Substance: RITUXIMAB
     Indication: DIFFUSE LARGE B-CELL LYMPHOMA
     Route: 065
     Dates: start: 20201127
  4. RITUXAN [Suspect]
     Active Substance: RITUXIMAB
     Indication: HYPERCALCAEMIA
  5. ONCOVIN [Concomitant]
     Active Substance: VINCRISTINE SULFATE
     Dosage: DAY 2
     Dates: start: 20201127
  6. PREDNISONE. [Concomitant]
     Active Substance: PREDNISONE
     Dosage: 5 PO QD * 3DAYS; 5 PO QD* 5 DAYS WITH CHEMO EVERY 21 DAYS
     Route: 048
  7. CYCLOPHOSPHAMIDE. [Concomitant]
     Active Substance: CYCLOPHOSPHAMIDE
     Dosage: D2 Q 21 DAYS 6 CYCLES
     Route: 042
     Dates: start: 20201127
  8. AREDIA [Concomitant]
     Active Substance: PAMIDRONATE DISODIUM
     Dates: start: 20201208
  9. PERCOCET [Concomitant]
     Active Substance: ACETAMINOPHEN\OXYCODONE HYDROCHLORIDE
     Indication: PAIN
     Dosage: 1 PO Q 4TH PRN
     Route: 048
  10. HYDROXYDAUNORUBICIN [Concomitant]
     Active Substance: DOXORUBICIN
     Dosage: DAY 1
     Dates: start: 20201127
  11. ALLOPURINOL. [Concomitant]
     Active Substance: ALLOPURINOL
     Route: 048

REACTIONS (3)
  - Off label use [Unknown]
  - Intentional product use issue [Unknown]
  - COVID-19 [Unknown]
